FAERS Safety Report 8873494 (Version 2)
Quarter: 2012Q4

REPORT INFORMATION
  Report Type: 
  Country: US (occurrence: US)
  Receive Date: 20121026
  Receipt Date: 20121213
  Transmission Date: 20130627
  Serious: Yes (Other)
  Sender: FDA-Public Use
  Company Number: US-ASTRAZENECA-2012SE25961

PATIENT
  Age: 65 Year
  Sex: Female

DRUGS (1)
  1. NEXIUM [Suspect]
     Route: 048

REACTIONS (6)
  - Road traffic accident [Unknown]
  - Oesophageal spasm [Unknown]
  - Fall [Unknown]
  - Hiatus hernia [Unknown]
  - Dysphagia [Unknown]
  - Oesophageal disorder [Unknown]
